FAERS Safety Report 7485734-7 (Version None)
Quarter: 2011Q2

REPORT INFORMATION
  Report Type: 
  Country: None (occurrence: None)
  Receive Date: 20110517
  Receipt Date: 20110510
  Transmission Date: 20111010
  Serious: Yes (Hospitalization)
  Sender: FDA-Public Use
  Company Number: FR-MERCK-1105FRA00057

PATIENT
  Age: 48 Year
  Sex: Female
  Weight: 92 kg

DRUGS (4)
  1. JANUVIA [Suspect]
     Indication: TYPE 2 DIABETES MELLITUS
     Route: 048
     Dates: start: 20100208, end: 20110216
  2. METFORMIN HYDROCHLORIDE AND PIOGLITAZONE HYDROCHLORIDE [Concomitant]
     Indication: TYPE 2 DIABETES MELLITUS
     Route: 048
     Dates: start: 20101214
  3. IRBESARTAN [Concomitant]
     Indication: HYPERTENSION
     Route: 048
     Dates: start: 20100816
  4. URSODIOL [Concomitant]
     Indication: HEPATIC STEATOSIS
     Route: 048
     Dates: start: 20051022

REACTIONS (2)
  - DIABETES MELLITUS INADEQUATE CONTROL [None]
  - GAIT DISTURBANCE [None]
